FAERS Safety Report 20203557 (Version 1)
Quarter: 2021Q4

REPORT INFORMATION
  Report Type: Spontaneous
  Country: RU (occurrence: RU)
  Receive Date: 20211219
  Receipt Date: 20211219
  Transmission Date: 20220303
  Serious: Yes (Hospitalization, Other)
  Sender: FDA-Public Use
  Company Number: RU-JNJFOC-20211223505

PATIENT
  Age: 38 Year
  Sex: Female
  Weight: 51 kg

DRUGS (12)
  1. SIRTURO [Suspect]
     Active Substance: BEDAQUILINE FUMARATE
     Indication: Tuberculosis
     Route: 048
     Dates: start: 20210824, end: 20211207
  2. LEVOFLOXACIN [Suspect]
     Active Substance: LEVOFLOXACIN
     Indication: Tuberculosis
     Route: 048
     Dates: start: 20210824, end: 20211207
  3. LINEZOLID [Suspect]
     Active Substance: LINEZOLID
     Indication: Tuberculosis
     Route: 048
     Dates: start: 20210824, end: 20211207
  4. CLOFAZIMINE [Suspect]
     Active Substance: CLOFAZIMINE
     Indication: Tuberculosis
     Route: 048
     Dates: start: 20210824, end: 20211207
  5. BENFOTIAMINE [Concomitant]
     Active Substance: BENFOTIAMINE
     Indication: Prophylaxis
     Route: 048
     Dates: start: 20210824
  6. PYRIDOXINE HYDROCHLORIDE [Concomitant]
     Active Substance: PYRIDOXINE HYDROCHLORIDE
     Indication: Prophylaxis
     Route: 048
     Dates: start: 20210824
  7. FOLIC ACID [Concomitant]
     Active Substance: FOLIC ACID
     Indication: Anaemia prophylaxis
     Route: 048
     Dates: start: 20210824
  8. PANTOPRAZOLE [Concomitant]
     Active Substance: PANTOPRAZOLE
     Indication: Chronic gastritis
     Route: 048
     Dates: start: 20210824
  9. VITAMIN B12 [Concomitant]
     Active Substance: CYANOCOBALAMIN
     Dosage: 1000 MKG
     Route: 030
     Dates: start: 20211204
  10. PANCREATIN [Concomitant]
     Active Substance: PANCRELIPASE
     Route: 048
     Dates: start: 20210824
  11. IRON [Concomitant]
     Active Substance: IRON
     Route: 042
     Dates: start: 20211207
  12. ALMAGEL [ALUMINIUM HYDROXIDE;ALUMINIUM PHOSPHATE;MAGNESIUM HYDROXIDE] [Concomitant]
     Route: 048
     Dates: start: 20211206

REACTIONS (3)
  - Anaemia [Not Recovered/Not Resolved]
  - Electrocardiogram QT prolonged [Unknown]
  - Nausea [Unknown]

NARRATIVE: CASE EVENT DATE: 20211005
